FAERS Safety Report 4983166-4 (Version None)
Quarter: 2006Q2

REPORT INFORMATION
  Report Type: 
  Country: None (occurrence: None)
  Receive Date: 20060419
  Receipt Date: 20060331
  Transmission Date: 20061013
  Serious: Yes (Hospitalization)
  Sender: FDA-Public Use
  Company Number: JP200604000848

PATIENT
  Age: 52 Year
  Sex: Male

DRUGS (1)
  1. HUMULIN R [Suspect]
     Dosage: INTRAVENOUS
     Route: 042
     Dates: start: 20050511

REACTIONS (5)
  - BLOOD CREATINE PHOSPHOKINASE INCREASED [None]
  - HAEMODIALYSIS [None]
  - HYPOKALAEMIA [None]
  - HYPOPHOSPHATAEMIA [None]
  - RHABDOMYOLYSIS [None]
